FAERS Safety Report 23813159 (Version 2)
Quarter: 2024Q3

REPORT INFORMATION
  Report Type: Spontaneous
  Country: US (occurrence: US)
  Receive Date: 20240503
  Receipt Date: 20240717
  Transmission Date: 20241016
  Serious: Yes (Death)
  Sender: AMNEAL
  Company Number: US-AMNEAL PHARMACEUTICALS-2024-AMRX-00327

PATIENT
  Sex: Male
  Weight: 14.512 kg

DRUGS (2)
  1. VIGABATRIN [Suspect]
     Active Substance: VIGABATRIN
     Indication: Infantile spasms
     Dosage: UNK, TWO TIMES PER DAY
     Route: 048
     Dates: start: 20240112
  2. VIGABATRIN [Suspect]
     Active Substance: VIGABATRIN
     Dosage: 10 MILLILITER, 2 /DAY
     Route: 065
     Dates: end: 20240623

REACTIONS (2)
  - Death [Fatal]
  - Muscle spasms [Not Recovered/Not Resolved]
